FAERS Safety Report 5099830-5 (Version None)
Quarter: 2006Q3

REPORT INFORMATION
  Report Type: 
  Country: None (occurrence: None)
  Receive Date: 20060906
  Receipt Date: 20060823
  Transmission Date: 20061208
  Serious: Yes (Hospitalization)
  Sender: FDA-Public Use
  Company Number: 2006102284

PATIENT
  Age: 44 Year
  Sex: Female

DRUGS (4)
  1. EPIRUBICIN [Suspect]
     Indication: BREAST CANCER
     Dates: start: 20060810
  2. CYCLOPHOSPHAMIDE [Suspect]
     Indication: BREAST CANCER
     Dates: start: 20060810
  3. FLUOROURACIL [Suspect]
     Indication: BREAST CANCER
     Dates: start: 20060810
  4. TRIPTORELIN ACETATE (TRIPTORELIN) [Suspect]
     Indication: BREAST CANCER
     Dates: start: 20060810

REACTIONS (4)
  - BACTERAEMIA [None]
  - CHILLS [None]
  - PYREXIA [None]
  - WHITE BLOOD CELL COUNT DECREASED [None]
